FAERS Safety Report 6375827-X (Version None)
Quarter: 2009Q3

REPORT INFORMATION
  Report Type: 
  Country: None (occurrence: None)
  Receive Date: 20090924
  Receipt Date: 20090918
  Transmission Date: 20100115
  Serious: Yes (Hospitalization)
  Sender: FDA-Public Use
  Company Number: US-ELI_LILLY_AND_COMPANY-US200909004423

PATIENT
  Sex: Male

DRUGS (3)
  1. HUMULIN R [Suspect]
  2. LANTUS [Concomitant]
     Indication: TYPE 2 DIABETES MELLITUS
     Dosage: 120 U, UNK
     Route: 058
     Dates: start: 20040101
  3. LANTUS [Concomitant]
     Dosage: 39 U, EACH EVENING
     Route: 058

REACTIONS (3)
  - CARDIAC OPERATION [None]
  - CORONARY ARTERY BYPASS [None]
  - HEART VALVE OPERATION [None]
